FAERS Safety Report 5780233-2 (Version None)
Quarter: 2008Q2

REPORT INFORMATION
  Report Type: 
  Country: None (occurrence: None)
  Receive Date: 20080620
  Receipt Date: 20080609
  Transmission Date: 20081010
  Serious: Yes (Hospitalization)
  Sender: FDA-Public Use
  Company Number: PHHY2008FR10501

PATIENT
  Age: 77 Year
  Sex: Male

DRUGS (4)
  1. TEGRETOL [Suspect]
     Indication: FACIAL NEURALGIA
     Dosage: 200 MG TWICE DAILY
     Route: 048
     Dates: start: 20080227, end: 20080228
  2. SKENAN [Concomitant]
  3. ACTISKENAN [Concomitant]
  4. LYRICA [Concomitant]

REACTIONS (4)
  - SKIN LESION [None]
  - STAPHYLOCOCCAL INFECTION [None]
  - STEVENS-JOHNSON SYNDROME [None]
  - TOXIC EPIDERMAL NECROLYSIS [None]
